FAERS Safety Report 15292258 (Version 1)
Quarter: 2018Q3

REPORT INFORMATION
  Report Type: Spontaneous
  Country: US (occurrence: US)
  Receive Date: 20180806
  Receipt Date: 20180806
  Transmission Date: 20181010
  Serious: No
  Sender: FDA-Public Use
  Company Number: None

PATIENT
  Age: 63 Year
  Sex: Female

DRUGS (3)
  1. AFINITOR [Suspect]
     Active Substance: EVEROLIMUS
     Indication: OVARIAN CANCER
     Route: 048
  2. PROVIGIL [Concomitant]
     Active Substance: MODAFINIL
  3. ENOXAPARIN SODIUM. [Concomitant]
     Active Substance: ENOXAPARIN SODIUM

REACTIONS (2)
  - Drug dose omission [None]
  - Pulmonary embolism [None]

NARRATIVE: CASE EVENT DATE: 20180726
